FAERS Safety Report 21286971 (Version 2)
Quarter: 2023Q1

REPORT INFORMATION
  Report Type: Report from Study
  Country: CA (occurrence: CA)
  Receive Date: 20220902
  Receipt Date: 20230315
  Transmission Date: 20230418
  Serious: Yes (Hospitalization, Other)
  Sender: FDA-Public Use
  Company Number: CA-NOVARTISPH-NVSC2022CA125267

PATIENT
  Age: 46 Year
  Sex: Female

DRUGS (14)
  1. METHOTREXATE [Suspect]
     Active Substance: METHOTREXATE
     Indication: Product used for unknown indication
     Dosage: UNK UNK, QW
     Route: 058
     Dates: start: 2018, end: 2019
  2. ACTEMRA [Suspect]
     Active Substance: TOCILIZUMAB
     Indication: Product used for unknown indication
     Dosage: UNK
     Route: 065
  3. AZATHIOPRINE [Suspect]
     Active Substance: AZATHIOPRINE
     Indication: Product used for unknown indication
     Dosage: UNK
     Route: 065
  4. ANAKINRA [Suspect]
     Active Substance: ANAKINRA
     Indication: Still^s disease
     Dosage: 1 DOSAGE FORM, QD
     Route: 058
     Dates: start: 2020
  5. SIMPONI [Concomitant]
     Active Substance: GOLIMUMAB
     Indication: Product used for unknown indication
     Dosage: UNK
     Route: 065
  6. CANAKINUMAB [Concomitant]
     Active Substance: CANAKINUMAB
     Indication: Product used for unknown indication
     Dosage: UNK
     Route: 065
  7. MEDROL [Concomitant]
     Active Substance: METHYLPREDNISOLONE
     Indication: Product used for unknown indication
     Dosage: UNK
     Route: 065
  8. PREDNISONE [Concomitant]
     Active Substance: PREDNISONE
     Indication: Product used for unknown indication
     Dosage: 60 MG
     Route: 065
     Dates: start: 20160708
  9. PREDNISONE [Concomitant]
     Active Substance: PREDNISONE
     Dosage: 75 MG
     Route: 065
     Dates: start: 20160722
  10. PREDNISONE [Concomitant]
     Active Substance: PREDNISONE
     Dosage: 55 MG
     Route: 065
     Dates: start: 20170227
  11. PREDNISONE [Concomitant]
     Active Substance: PREDNISONE
     Dosage: 50 (UNIT: UNKNOWN)
     Route: 065
     Dates: start: 20170601
  12. PREDNISONE [Concomitant]
     Active Substance: PREDNISONE
     Dosage: 40 MG
     Route: 065
     Dates: start: 20170705
  13. PREDNISONE [Concomitant]
     Active Substance: PREDNISONE
     Dosage: 15-20 MG INCREASED TO 50 MG
     Route: 065
     Dates: start: 20210112
  14. PREDNISONE [Concomitant]
     Active Substance: PREDNISONE
     Dosage: 25 MG
     Route: 065
     Dates: start: 20210501

REACTIONS (21)
  - COVID-19 pneumonia [Recovered/Resolved]
  - Condition aggravated [Unknown]
  - Rash pruritic [Unknown]
  - Rash [Unknown]
  - Rash erythematous [Unknown]
  - Anaphylactic reaction [Unknown]
  - Diabetes mellitus [Unknown]
  - Hepatotoxicity [Unknown]
  - Hepatitis [Unknown]
  - Obesity [Unknown]
  - Hypertension [Unknown]
  - Skin oedema [Unknown]
  - Weight increased [Unknown]
  - Extravasation blood [Unknown]
  - Uterine leiomyoma [Unknown]
  - Periodontal inflammation [Unknown]
  - Arthritis [Unknown]
  - Malaise [Unknown]
  - Osteoporosis [Unknown]
  - Pyrexia [Unknown]
  - Treatment failure [Unknown]

NARRATIVE: CASE EVENT DATE: 20210101
